FAERS Safety Report 22278177 (Version 1)
Quarter: 2023Q2

REPORT INFORMATION
  Report Type: Spontaneous
  Country: US (occurrence: None)
  Receive Date: 20230502
  Receipt Date: 20230502
  Transmission Date: 20230721
  Serious: No
  Sender: FDA-Public Use
  Company Number: None

PATIENT
  Age: 79 Year
  Sex: Female

DRUGS (2)
  1. COSENTYX [Suspect]
     Active Substance: SECUKINUMAB
  2. SPIRONOLACTONE [Suspect]
     Active Substance: SPIRONOLACTONE

REACTIONS (2)
  - Blood electrolytes decreased [None]
  - Blood sodium decreased [None]
